FAERS Safety Report 9033394 (Version 2)
Quarter: 2013Q1

REPORT INFORMATION
  Report Type: Spontaneous
  Country: US (occurrence: US)
  Receive Date: 20130128
  Receipt Date: 20130214
  Transmission Date: 20140127
  Serious: Yes (Hospitalization)
  Sender: FDA-Public Use
  Company Number: CHPA2013US001628

PATIENT
  Age: 54 Year
  Sex: Female

DRUGS (5)
  1. VOLTAREN GEL [Suspect]
     Indication: ARTHRITIS
     Dosage: ABOUT 1 INCH, BID
     Route: 061
     Dates: start: 20130115, end: 20130121
  2. VOLTAREN GEL [Suspect]
     Dosage: ABOUT 1 INCH, TID
     Route: 061
     Dates: start: 20130115, end: 20130121
  3. VOLTAREN GEL [Suspect]
     Dosage: ABOUT 1 INCH, BID
     Route: 061
     Dates: end: 20130121
  4. VOLTAREN GEL [Suspect]
     Dosage: ABOUT 1 INCH, TID
     Route: 061
  5. INSULIN [Concomitant]
     Indication: DIABETES MELLITUS

REACTIONS (7)
  - Nerve compression [Not Recovered/Not Resolved]
  - Disease recurrence [Not Recovered/Not Resolved]
  - Muscle spasms [Not Recovered/Not Resolved]
  - Asthenia [Not Recovered/Not Resolved]
  - Drug ineffective [Unknown]
  - Wrong technique in drug usage process [Unknown]
  - Drug administered at inappropriate site [Unknown]
